FAERS Safety Report 4992773-4 (Version None)
Quarter: 2006Q2

REPORT INFORMATION
  Report Type: 
  Country: None (occurrence: None)
  Receive Date: 20060504
  Receipt Date: 20060310
  Transmission Date: 20061013
  Serious: Yes (Hospitalization)
  Sender: FDA-Public Use
  Company Number: FR-ABBOTT-06P-056-0327870-00

PATIENT
  Age: 57 Year
  Sex: Male

DRUGS (8)
  1. KALETRA [Suspect]
     Indication: HIV INFECTION
     Route: 048
     Dates: start: 20040224, end: 20040721
  2. KALETRA [Suspect]
     Route: 048
     Dates: start: 20040810
  3. BACTRIM [Suspect]
     Indication: HIV INFECTION
     Route: 048
     Dates: start: 20040224, end: 20040721
  4. BACTRIM [Suspect]
     Route: 048
     Dates: start: 20040805
  5. ABACAVIR [Suspect]
     Indication: HIV INFECTION
     Route: 048
     Dates: start: 20040224, end: 20040721
  6. ABACAVIR [Suspect]
     Route: 048
     Dates: start: 20040810
  7. TERBINAFINE HCL [Concomitant]
     Indication: MYCOSIS FUNGOIDES
     Route: 048
     Dates: start: 20040529, end: 20040710
  8. LAMIVUDINE [Concomitant]
     Indication: HIV INFECTION
     Route: 048
     Dates: start: 20040224, end: 20040721

REACTIONS (4)
  - DIARRHOEA [None]
  - PYREXIA [None]
  - STEVENS-JOHNSON SYNDROME [None]
  - TOXIC EPIDERMAL NECROLYSIS [None]
